FAERS Safety Report 10907766 (Version 1)
Quarter: 2015Q1

REPORT INFORMATION
  Report Type: Spontaneous
  Country: US (occurrence: US)
  Receive Date: 20150312
  Receipt Date: 20150312
  Transmission Date: 20150721
  Serious: Yes (Other)
  Sender: FDA-Public Use
  Company Number: US-INCYTE CORPORATION-2015IN000273

PATIENT
  Sex: Female

DRUGS (1)
  1. JAKAFI [Suspect]
     Active Substance: RUXOLITINIB
     Indication: MYELOFIBROSIS
     Dosage: 5 MG QD
     Route: 048

REACTIONS (4)
  - Pyrexia [Unknown]
  - Insomnia [Unknown]
  - Drug dose omission [Unknown]
  - Platelet count decreased [Not Recovered/Not Resolved]
